FAERS Safety Report 14374262 (Version 1)
Quarter: 2018Q1

REPORT INFORMATION
  Report Type: Spontaneous
  Country: FR (occurrence: FR)
  Receive Date: 20180111
  Receipt Date: 20180111
  Transmission Date: 20180509
  Serious: Yes (Other)
  Sender: FDA-Public Use
  Company Number: FR-MERCK KGAA-2039893

PATIENT
  Age: 66 Year
  Sex: Female

DRUGS (14)
  1. NOVOTHYROX [Suspect]
     Active Substance: LEVOTHYROXINE SODIUM
     Indication: PRODUCT USED FOR UNKNOWN INDICATION
     Dates: start: 20170427
  2. IBUFETUM [Concomitant]
     Active Substance: IBUPROFEN
  3. BISOPROLOL [Concomitant]
     Active Substance: BISOPROLOL
  4. ZANEXTRA(ZANERIL) [Concomitant]
     Active Substance: ENALAPRIL MALEATE\LERCANIDIPINE HYDROCHLORIDE
  5. MUPIROCINE CREAM [Concomitant]
     Active Substance: MUPIROCIN
  6. VOLTARENE EMULGEL [Concomitant]
     Active Substance: DICLOFENAC DIETHYLAMINE
  7. MUPIDERM [Concomitant]
     Active Substance: MUPIROCIN
  8. CARBOSYMAG [Concomitant]
  9. EFFERALGAN [Concomitant]
     Active Substance: ACETAMINOPHEN
  10. BISEPTINE [Concomitant]
     Active Substance: BENZALKONIUM CHLORIDE\BENZYL ALCOHOL\CHLORHEXIDINE
  11. HAMAMELIS COMPOSE [Concomitant]
  12. CIRKAN (ASCORBIC ACID\HERBALS\HESPERIDIN METHYLCHALCONE\PANCRELIPASE) [Suspect]
     Active Substance: ASCORBIC ACID\HERBALS\HESPERIDIN METHYLCHALCONE\PANCRELIPASE
  13. VOLTARENE (DICLOFENAC SODIUM) [Concomitant]
     Active Substance: DICLOFENAC SODIUM
  14. GAVISCON [Concomitant]
     Active Substance: ALUMINUM HYDROXIDE\MAGNESIUM CARBONATE

REACTIONS (10)
  - Vision blurred [None]
  - Intraocular pressure increased [Recovered/Resolved]
  - Restless legs syndrome [None]
  - Insomnia [None]
  - Hot flush [None]
  - Alopecia [None]
  - Weight decreased [None]
  - Gastrointestinal pain [None]
  - Muscle spasms [None]
  - Asthenia [None]

NARRATIVE: CASE EVENT DATE: 2017
